FAERS Safety Report 9496665 (Version 1)
Quarter: 2013Q3

REPORT INFORMATION
  Report Type: Spontaneous
  Country: US (occurrence: None)
  Receive Date: 20130903
  Receipt Date: 20130903
  Transmission Date: 20140515
  Serious: Yes (Death)
  Sender: FDA-Public Use
  Company Number: None

PATIENT
  Age: 49 Year
  Sex: Male
  Weight: 102.97 kg

DRUGS (2)
  1. MIDOSTAURIN [Suspect]
     Indication: ACUTE MYELOID LEUKAEMIA
     Dosage: 50MG PO BID DAYS 8-21
     Route: 048
     Dates: start: 20130612, end: 20130625
  2. BORTEZOMIB [Suspect]
     Indication: ACUTE MYELOID LEUKAEMIA
     Dosage: 1.0MG/M2  SQ  DAYS  8 + 15
     Route: 058
     Dates: start: 20130612

REACTIONS (12)
  - Tachycardia [None]
  - Febrile neutropenia [None]
  - Decreased appetite [None]
  - Clostridium difficile colitis [None]
  - Fatigue [None]
  - Cough [None]
  - Pulmonary mass [None]
  - Colitis [None]
  - Disease progression [None]
  - Bacteraemia [None]
  - Device related infection [None]
  - Electrocardiogram QT prolonged [None]
